FAERS Safety Report 8616509-0 (Version None)
Quarter: 2012Q3

REPORT INFORMATION
  Report Type: 
  Country: None (occurrence: None)
  Receive Date: 20120823
  Receipt Date: 20120425
  Transmission Date: 20120928
  Serious: Yes (Other)
  Sender: FDA-Public Use
  Company Number: US-TEVA-245012USA

PATIENT
  Age: 48 Year
  Sex: Female
  Weight: 40.406 kg

DRUGS (1)
  1. METOCLOPRAMIDE [Suspect]
     Dates: start: 20030101, end: 20091001

REACTIONS (7)
  - TARDIVE DYSKINESIA [None]
  - FALL [None]
  - SPEECH DISORDER [None]
  - MUSCLE TWITCHING [None]
  - MOVEMENT DISORDER [None]
  - LOWER LIMB FRACTURE [None]
  - TREMOR [None]
